FAERS Safety Report 8862278 (Version 1)
Quarter: 2012Q4

REPORT INFORMATION
  Report Type: 
  Country: FR (occurrence: FR)
  Receive Date: 20121026
  Receipt Date: 20121026
  Transmission Date: 20130627
  Serious: Yes (Hospitalization)
  Sender: FDA-Public Use
  Company Number: FR-JNJFOC-20121008874

PATIENT
  Age: 13 Year
  Sex: Male

DRUGS (2)
  1. RISPERDAL [Suspect]
     Indication: PRODUCT USED FOR UNKNOWN INDICATION
     Route: 048
     Dates: start: 20121001, end: 20121002
  2. LEXOMIL [Concomitant]
     Indication: ANXIETY
     Route: 048

REACTIONS (3)
  - Extrapyramidal disorder [Recovered/Resolved]
  - Drug prescribing error [Recovered/Resolved]
  - Drug prescribing error [Recovered/Resolved]
